FAERS Safety Report 4427435-5 (Version None)
Quarter: 2004Q3

REPORT INFORMATION
  Report Type: 
  Country: None (occurrence: None)
  Receive Date: 20040812
  Receipt Date: 20040803
  Transmission Date: 20050211
  Serious: Yes (Other)
  Sender: FDA-Public Use
  Company Number: S04-USA-04782-01

PATIENT
  Age: 20 Year
  Sex: Female

DRUGS (3)
  1. LEXAPRO [Suspect]
     Dosage: 10 MG QD PO
     Route: 048
     Dates: start: 20040101, end: 20040701
  2. CELEXA [Suspect]
     Dosage: 40 MG QD PO
     Route: 048
     Dates: end: 20040101
  3. STRATTERA [Suspect]
     Dosage: 80 MG QD

REACTIONS (1)
  - CONVULSION [None]
